FAERS Safety Report 8535006-4 (Version None)
Quarter: 2012Q3

REPORT INFORMATION
  Report Type: 
  Country: None (occurrence: None)
  Receive Date: 20120724
  Receipt Date: 20120717
  Transmission Date: 20120928
  Serious: Yes (Other)
  Sender: FDA-Public Use
  Company Number: FR-PFIZER INC-2012069039

PATIENT
  Sex: Female

DRUGS (1)
  1. EFFEXOR XR [Suspect]
     Indication: ANXIETY
     Dosage: 112.5 MG (37.5MG, 3DF), 1X/DAY
     Route: 064
     Dates: start: 20001001, end: 20001201

REACTIONS (6)
  - MATERNAL EXPOSURE TIMING UNSPECIFIED [None]
  - INSOMNIA [None]
  - RESTLESSNESS [None]
  - DEVELOPMENTAL DELAY [None]
  - ATTENTION DEFICIT/HYPERACTIVITY DISORDER [None]
  - AGITATION [None]
